FAERS Safety Report 8958678 (Version 1)
Quarter: 2012Q4

REPORT INFORMATION
  Report Type: 
  Country: CN (occurrence: CN)
  Receive Date: 20121212
  Receipt Date: 20121212
  Transmission Date: 20130627
  Serious: Yes (Hospitalization)
  Sender: FDA-Public Use
  Company Number: CN-BAYER-2012-129532

PATIENT
  Age: 25 Year
  Sex: Female

DRUGS (1)
  1. NIFEDIPINE [Suspect]
     Dosage: 6 g, ONCE

REACTIONS (10)
  - Intentional overdose [Recovered/Resolved]
  - Calcium ionised decreased [Recovered/Resolved]
  - Blood glucose increased [Recovered/Resolved]
  - Hypotension [None]
  - Loss of consciousness [Recovered/Resolved]
  - Metabolic acidosis [None]
  - Cardiac index decreased [Recovered/Resolved]
  - Respiratory failure [None]
  - Tachycardia [None]
  - Hyperlactacidaemia [None]
